FAERS Safety Report 7675215-X (Version None)
Quarter: 2011Q3

REPORT INFORMATION
  Report Type: 
  Country: None (occurrence: None)
  Receive Date: 20110810
  Receipt Date: 20110810
  Transmission Date: 20111222
  Serious: Yes (Other)
  Sender: FDA-Public Use
  Company Number: None

PATIENT
  Sex: Female

DRUGS (1)
  1. HUMATROPE [Suspect]
     Dosage: 1.4MG
     Route: 058
     Dates: start: 20110727, end: 20110730

REACTIONS (3)
  - HYPERSENSITIVITY [None]
  - REACTION TO DRUG EXCIPIENTS [None]
  - INJECTION SITE RASH [None]
